FAERS Safety Report 21196889 (Version 1)
Quarter: 2022Q3

REPORT INFORMATION
  Report Type: Spontaneous
  Country: CA (occurrence: CA)
  Receive Date: 20220810
  Receipt Date: 20220810
  Transmission Date: 20221027
  Serious: Yes (Other)
  Sender: FDA-Public Use
  Company Number: CA-JAZZ-2022-CA-021027

PATIENT
  Age: 60 Year
  Sex: Male

DRUGS (1)
  1. VYXEOS [Suspect]
     Active Substance: CYTARABINE\DAUNORUBICIN
     Indication: Acute myeloid leukaemia
     Dosage: 3 DOSES OF INDUCTION

REACTIONS (4)
  - Febrile neutropenia [Unknown]
  - Escherichia bacteraemia [Unknown]
  - Neutropenic colitis [Unknown]
  - Petechiae [Recovering/Resolving]
